FAERS Safety Report 8336810-8 (Version None)
Quarter: 2012Q2

REPORT INFORMATION
  Report Type: 
  Country: None (occurrence: None)
  Receive Date: 20120501
  Receipt Date: 20120424
  Transmission Date: 20120825
  Serious: Yes (Hospitalization)
  Sender: FDA-Public Use
  Company Number: MLL-2012-00004

PATIENT
  Age: 61 Year
  Sex: Male

DRUGS (1)
  1. SIMVASTATIN [Suspect]
     Indication: PRODUCT USED FOR UNKNOWN INDICATION

REACTIONS (6)
  - TENDON RUPTURE [None]
  - WEIGHT BEARING DIFFICULTY [None]
  - ARTHRALGIA [None]
  - FALL [None]
  - TENDON PAIN [None]
  - JOINT CREPITATION [None]
